FAERS Safety Report 6520092-3 (Version None)
Quarter: 2009Q4

REPORT INFORMATION
  Report Type: 
  Country: None (occurrence: None)
  Receive Date: 20091229
  Receipt Date: 20091216
  Transmission Date: 20100525
  Serious: Yes (Hospitalization, Other)
  Sender: FDA-Public Use
  Company Number: PHHY2009MX46800

PATIENT
  Sex: Female

DRUGS (2)
  1. DIOVAN HCT [Suspect]
     Indication: HYPERTENSION
     Dosage: 1 TABET (160/12.5 MG) PER DAY
     Dates: start: 20090901
  2. GALVUS [Suspect]
     Indication: DIABETES MELLITUS
     Dosage: 1 TABLET (50 MG) PER DAY
     Dates: start: 20080101

REACTIONS (3)
  - FALL [None]
  - FEMUR FRACTURE [None]
  - PROSTHESIS IMPLANTATION [None]
